FAERS Safety Report 8622619-4 (Version None)
Quarter: 2012Q3

REPORT INFORMATION
  Report Type: 
  Country: None (occurrence: None)
  Receive Date: 20120827
  Receipt Date: 20120820
  Transmission Date: 20120928
  Serious: Yes (Other)
  Sender: FDA-Public Use
  Company Number: IE-JNJFOC-20120708983

PATIENT
  Sex: Female

DRUGS (10)
  1. ZOFRAN [Concomitant]
     Route: 065
  2. FELDENE [Concomitant]
     Route: 065
  3. TRAMADOL HCL [Concomitant]
     Route: 065
  4. SIMPONI [Suspect]
     Indication: ANKYLOSING SPONDYLITIS
     Route: 058
     Dates: end: 20120514
  5. DELTACORTRIL [Concomitant]
     Route: 065
  6. OMEPRAZOLE (PRISOLEC) [Concomitant]
     Route: 065
  7. CALCIUM CARBONATE [Concomitant]
     Route: 065
  8. ZIMOVANE [Concomitant]
     Route: 065
  9. SIMPONI [Suspect]
     Route: 058
     Dates: start: 20111014
  10. SERTRALINE HYDROCHLORIDE [Concomitant]
     Route: 065

REACTIONS (1)
  - CONVULSION [None]
